FAERS Safety Report 11485155 (Version 1)
Quarter: 2015Q3

REPORT INFORMATION
  Report Type: Spontaneous
  Country: US (occurrence: None)
  Receive Date: 20150909
  Receipt Date: 20150909
  Transmission Date: 20151125
  Serious: Yes (Disabling)
  Sender: FDA-Public Use
  Company Number: None

PATIENT
  Age: 43 Year
  Sex: Female
  Weight: 68.04 kg

DRUGS (1)
  1. FETZIMA [Suspect]
     Active Substance: LEVOMILNACIPRAN HYDROCHLORIDE
     Route: 048
     Dates: start: 20150813, end: 20150829

REACTIONS (4)
  - Product substitution issue [None]
  - Fatigue [None]
  - Eye irritation [None]
  - Drug effect decreased [None]

NARRATIVE: CASE EVENT DATE: 20150814
